FAERS Safety Report 9265915 (Version 1)
Quarter: 2013Q2

REPORT INFORMATION
  Report Type: Spontaneous
  Country: US (occurrence: US)
  Receive Date: 20130501
  Receipt Date: 20130501
  Transmission Date: 20140414
  Serious: Yes (Other)
  Sender: FDA-Public Use
  Company Number: CHPA2013US007054

PATIENT
  Age: 67 Year
  Sex: Female

DRUGS (1)
  1. EXCEDRIN ES BACK + BODY [Suspect]
     Indication: LIGAMENT SPRAIN
     Dosage: 2 DF, QD
     Route: 048

REACTIONS (3)
  - Hypertension [Recovering/Resolving]
  - Blood cholesterol increased [Recovering/Resolving]
  - Off label use [Unknown]
